FAERS Safety Report 5290182-4 (Version None)
Quarter: 2007Q2

REPORT INFORMATION
  Report Type: 
  Country: None (occurrence: None)
  Receive Date: 20070402
  Receipt Date: 20070321
  Transmission Date: 20071010
  Serious: Yes (Death, Hospitalization)
  Sender: FDA-Public Use
  Company Number: 238642

PATIENT
  Age: 80 Year
  Sex: Male
  Weight: 61.7 kg

DRUGS (11)
  1. AVASTIN [Suspect]
     Indication: SMALL CELL LUNG CANCER STAGE UNSPECIFIED
     Dosage: 10 MG/KG, DAYS 1+15, INTRAVENOUS
     Route: 042
     Dates: start: 20070207
  2. IRINOTECAN HCL [Suspect]
     Indication: SMALL CELL LUNG CANCER STAGE UNSPECIFIED
     Dosage: 60 MG/M2, DAYS 1,8,15, INTRAVENOUS
     Route: 042
     Dates: start: 20070207
  3. CARBOPLATIN [Suspect]
     Indication: SMALL CELL LUNG CANCER STAGE UNSPECIFIED
     Dosage: 4 AUC, INTRAVENOUS
     Route: 042
     Dates: start: 20070207
  4. RISPERDAL [Concomitant]
  5. XALATAN [Concomitant]
  6. ISORDIL [Concomitant]
  7. PERSANTINE [Concomitant]
  8. TIXOCORTOL (TIXOCORTOL PIVALATE) [Concomitant]
  9. TIMOPTIC [Concomitant]
  10. TENORMIN [Concomitant]
  11. SENOKOT [Concomitant]

REACTIONS (16)
  - ATELECTASIS [None]
  - BLOOD GLUCOSE INCREASED [None]
  - BLOOD SODIUM DECREASED [None]
  - CHEST PAIN [None]
  - CHOLELITHIASIS [None]
  - FEBRILE NEUTROPENIA [None]
  - HAEMATOCRIT DECREASED [None]
  - HAEMOGLOBIN DECREASED [None]
  - INTESTINAL DILATATION [None]
  - NAUSEA [None]
  - NECK PAIN [None]
  - OESOPHAGEAL DISORDER [None]
  - PLEURAL EFFUSION [None]
  - SUDDEN DEATH [None]
  - VOMITING [None]
  - WHITE BLOOD CELL COUNT DECREASED [None]
